FAERS Safety Report 8581462 (Version 2)
Quarter: 2013Q1

REPORT INFORMATION
  Report Type: Spontaneous
  Country: FI (occurrence: FI)
  Receive Date: 20120525
  Receipt Date: 20130110
  Transmission Date: 20140127
  Serious: Yes (Other)
  Sender: FDA-Public Use
  Company Number: FI-ELI_LILLY_AND_COMPANY-FI201204009130

PATIENT
  Age: 58 Year
  Sex: Female

DRUGS (10)
  1. CYMBALTA [Suspect]
     Indication: DEPRESSION
     Dosage: 30 MG, UNK
     Dates: start: 20111025
  2. CYMBALTA [Interacting]
     Dosage: 60 MG, UNK
     Dates: start: 201111
  3. CYMBALTA [Interacting]
     Dosage: 30 MG, UNK
  4. CYMBALTA [Interacting]
     Dosage: 60 MG, UNK
     Dates: start: 201210
  5. CYMBALTA [Interacting]
     Dosage: 30 MG, QD
  6. ORLOC [Interacting]
     Dosage: 2.5 MG, PRN
  7. ESTROFEM [Interacting]
     Dosage: 1 MG, QD
     Route: 048
  8. PARA-TABS [Concomitant]
     Dosage: 1 G, 1-3 DAILY, PRN
  9. MOTIFENE [Concomitant]
     Dosage: 75 MG, OD, PRN
  10. MELATONIN [Concomitant]
     Dosage: 3 MG, 1-2 DAILY, PRN

REACTIONS (2)
  - Blood pressure decreased [Recovered/Resolved]
  - Drug interaction [Recovered/Resolved]
